FAERS Safety Report 7371449-2 (Version None)
Quarter: 2011Q1

REPORT INFORMATION
  Report Type: 
  Country: None (occurrence: None)
  Receive Date: 20110324
  Receipt Date: 20110318
  Transmission Date: 20110831
  Serious: Yes (Other)
  Sender: FDA-Public Use
  Company Number: FR-BRISTOL-MYERS SQUIBB COMPANY-15564677

PATIENT
  Age: 33 Year
  Sex: Female
  Weight: 52 kg

DRUGS (3)
  1. ABILIFY [Suspect]
     Indication: BIPOLAR DISORDER
     Route: 048
     Dates: start: 20100628
  2. SEROPLEX [Concomitant]
     Indication: DEPRESSED MOOD
     Dosage: DURATION: 1 1/2 YEAR
     Route: 048
     Dates: start: 20090901
  3. SEROPLEX [Concomitant]
     Indication: BIPOLAR DISORDER
     Dosage: DURATION: 1 1/2 YEAR
     Route: 048
     Dates: start: 20090901

REACTIONS (1)
  - SYSTEMIC LUPUS ERYTHEMATOSUS [None]
